FAERS Safety Report 7946577-0 (Version None)
Quarter: 2011Q4

REPORT INFORMATION
  Report Type: 
  Country: None (occurrence: None)
  Receive Date: 20111122
  Receipt Date: 20111115
  Transmission Date: 20120403
  Serious: Yes (Other)
  Sender: FDA-Public Use
  Company Number: 2011SP053564

PATIENT
  Age: 43 Year
  Sex: Female

DRUGS (1)
  1. CERAZETTE (DESOGESTREL /00754001/) [Suspect]
     Indication: CONTRACEPTION
     Dates: start: 20110801

REACTIONS (3)
  - MENORRHAGIA [None]
  - PNEUMONIA [None]
  - FALLOPIAN TUBE CYST [None]
